FAERS Safety Report 8085387-3 (Version None)
Quarter: 2012Q1

REPORT INFORMATION
  Report Type: 
  Country: None (occurrence: None)
  Receive Date: 20120128
  Receipt Date: 20110419
  Transmission Date: 20120608
  Serious: Yes (Hospitalization, Other)
  Sender: FDA-Public Use
  Company Number: US-ABBOTT-10P-163-0689569-00

PATIENT
  Sex: Male
  Weight: 77.634 kg

DRUGS (4)
  1. METHOTREXATE [Concomitant]
     Indication: RHEUMATOID ARTHRITIS
     Dates: start: 20110224
  2. HUMIRA [Suspect]
     Indication: RHEUMATOID ARTHRITIS
     Route: 058
     Dates: start: 20100719
  3. MOBIC [Concomitant]
     Indication: PRODUCT USED FOR UNKNOWN INDICATION
     Dosage: DAILY AS NEEDED
  4. PREDNISONE TAB [Concomitant]
     Indication: RHEUMATOID ARTHRITIS
     Dosage: LOW DOSE
     Dates: start: 20110224

REACTIONS (13)
  - PNEUMONIA [None]
  - JOINT STIFFNESS [None]
  - FATIGUE [None]
  - NIGHT SWEATS [None]
  - LYMPHADENOPATHY [None]
  - PULMONARY FUNCTION TEST ABNORMAL [None]
  - TUBERCULOSIS [None]
  - ARTHRALGIA [None]
  - PYREXIA [None]
  - WEIGHT DECREASED [None]
  - JOINT EFFUSION [None]
  - RHEUMATOID ARTHRITIS [None]
  - COUGH [None]
